FAERS Safety Report 5035560-3 (Version None)
Quarter: 2006Q2

REPORT INFORMATION
  Report Type: 
  Country: None (occurrence: None)
  Receive Date: 20060627
  Receipt Date: 20060620
  Transmission Date: 20061013
  Serious: Yes (Hospitalization, Other)
  Sender: FDA-Public Use
  Company Number: US-JNJFOC-20060504352

PATIENT
  Sex: Female
  Weight: 69.1 kg

DRUGS (9)
  1. REMICADE [Suspect]
  2. REMICADE [Suspect]
  3. REMICADE [Suspect]
  4. REMICADE [Suspect]
     Indication: COLITIS ULCERATIVE
  5. 6-MP [Concomitant]
  6. 6-MP [Concomitant]
  7. PENTASA [Concomitant]
  8. ASACOL [Concomitant]
  9. PREDNISONE TAB [Concomitant]

REACTIONS (4)
  - CAVERNOUS SINUS THROMBOSIS [None]
  - CEREBROVASCULAR ACCIDENT [None]
  - NAUSEA [None]
  - VOMITING [None]
